FAERS Safety Report 12277067 (Version 2)
Quarter: 2016Q2

REPORT INFORMATION
  Report Type: Spontaneous
  Country: JP (occurrence: JP)
  Receive Date: 20160418
  Receipt Date: 20160421
  Transmission Date: 20160815
  Serious: Yes (Death)
  Sender: FDA-Public Use
  Company Number: JP-JT-EVA201600834KERYXP-001

PATIENT
  Age: 54 Year
  Sex: Male
  Weight: 49 kg

DRUGS (18)
  1. BRUFEN                             /00109201/ [Concomitant]
     Active Substance: IBUPROFEN
     Indication: HEADACHE
     Dosage: 100 MG, TID
     Route: 048
     Dates: start: 20160401, end: 201604
  2. AZELNIDIPINE [Concomitant]
     Active Substance: AZELNIDIPINE
     Indication: HYPERTENSION
     Dosage: 16 MG, QD
     Route: 048
     Dates: end: 20160406
  3. LAC-B [Concomitant]
     Active Substance: BIFIDOBACTERIUM SPP.
     Indication: DIARRHOEA
     Dosage: 1 G, TID
     Route: 048
     Dates: start: 20160321, end: 20160406
  4. WARFARIN [Concomitant]
     Active Substance: WARFARIN
     Indication: PERIPHERAL ARTERIAL OCCLUSIVE DISEASE
     Dosage: 0.25 MG, QD
     Route: 048
     Dates: end: 20160406
  5. RIONA [Suspect]
     Active Substance: FERRIC CITRATE ANHYDROUS
     Indication: HYPERPHOSPHATAEMIA
     Dosage: 1500 MG, QD
     Route: 048
     Dates: start: 20160314, end: 20160330
  6. TAKEPRON [Concomitant]
     Active Substance: LANSOPRAZOLE
     Indication: GASTROOESOPHAGEAL REFLUX DISEASE
     Dosage: 15 MG, QD
     Route: 048
     Dates: end: 20160406
  7. SARPOGRELATE HYDROCHLORIDE [Concomitant]
     Active Substance: SARPOGRELATE
     Indication: ARTERIAL OCCLUSIVE DISEASE
     Dosage: 100 MG, TID
     Route: 048
     Dates: end: 20160406
  8. REGPARA [Concomitant]
     Active Substance: CINACALCET HYDROCHLORIDE
     Indication: HYPERPARATHYROIDISM SECONDARY
     Dosage: 25 MG, QD
     Route: 048
     Dates: end: 20160406
  9. REBAMIPIDE [Concomitant]
     Active Substance: REBAMIPIDE
     Indication: CHRONIC GASTRITIS
     Dosage: 100 MG, TID
     Route: 048
     Dates: end: 20160406
  10. RIONA [Suspect]
     Active Substance: FERRIC CITRATE ANHYDROUS
     Dosage: 2250 MG, QD
     Route: 048
     Dates: start: 20160331, end: 20160406
  11. EPOETIN ALFA [Concomitant]
     Active Substance: ERYTHROPOIETIN
     Indication: NEPHROGENIC ANAEMIA
     Dosage: 1500 IU, 3 TIMES/WK
     Route: 042
     Dates: start: 20160404, end: 20160406
  12. WARFARIN [Concomitant]
     Active Substance: WARFARIN
     Indication: ARTERIAL OCCLUSIVE DISEASE
     Dosage: 1 MG, QD
     Route: 048
     Dates: end: 20160406
  13. OXAROL [Concomitant]
     Active Substance: MAXACALCITOL
     Indication: HYPERPARATHYROIDISM SECONDARY
     Dosage: 5 MICROGRAM, 2 TIMES/WK
     Route: 042
     Dates: start: 20160316, end: 20160406
  14. YOUPATCH [Concomitant]
     Indication: PAIN PROPHYLAXIS
     Dosage: 2 DF, UNK
     Route: 062
     Dates: end: 20160406
  15. KAYEXALATE [Concomitant]
     Active Substance: SODIUM POLYSTYRENE SULFONATE
     Indication: HYPERKALAEMIA
     Dosage: 2.18 G, TID
     Route: 048
     Dates: end: 20160406
  16. PRIMOBOLAN                         /00044803/ [Concomitant]
     Indication: MYELODYSPLASTIC SYNDROME
     Dosage: 5 MG, BID
     Route: 048
     Dates: end: 20160406
  17. SHAKUYAKUKANZOTO [Concomitant]
     Active Substance: HERBALS
     Indication: DIALYSIS RELATED COMPLICATION
     Dosage: 1 DF, UNK
     Route: 048
     Dates: start: 20130712, end: 20160406
  18. SARPOGRELATE HYDROCHLORIDE [Concomitant]
     Active Substance: SARPOGRELATE
     Indication: PERIPHERAL ARTERIAL OCCLUSIVE DISEASE

REACTIONS (1)
  - Cerebral haemorrhage [Fatal]

NARRATIVE: CASE EVENT DATE: 20160407
